FAERS Safety Report 8366061-2 (Version None)
Quarter: 2012Q2

REPORT INFORMATION
  Report Type: 
  Country: None (occurrence: None)
  Receive Date: 20120516
  Receipt Date: 20120516
  Transmission Date: 20120825
  Serious: Yes (Death, Life-Threatening, Hospitalization, Other)
  Sender: FDA-Public Use
  Company Number: None

PATIENT
  Sex: Female
  Weight: 142.4295 kg

DRUGS (1)
  1. CIMZIA [Suspect]
     Dosage: 2 VIALS MONTHLY SQ
     Route: 058

REACTIONS (11)
  - ABDOMINAL PAIN [None]
  - DECREASED APPETITE [None]
  - RENAL FAILURE [None]
  - SKIN DISCOLOURATION [None]
  - NAUSEA [None]
  - DEHYDRATION [None]
  - WEIGHT INCREASED [None]
  - BLISTER [None]
  - SEPSIS [None]
  - VOMITING [None]
  - LACTIC ACIDOSIS [None]
